FAERS Safety Report 7551095-8 (Version None)
Quarter: 2011Q2

REPORT INFORMATION
  Report Type: 
  Country: None (occurrence: None)
  Receive Date: 20110616
  Receipt Date: 20110609
  Transmission Date: 20111010
  Serious: Yes (Hospitalization)
  Sender: FDA-Public Use
  Company Number: CH-NOVOPROD-329723

PATIENT
  Age: 65 Year
  Sex: Female

DRUGS (1)
  1. ACTIVELLE [Suspect]
     Indication: MENOPAUSAL DISORDER
     Dosage: ORAL
     Route: 048

REACTIONS (1)
  - CEREBRAL VENOUS THROMBOSIS [None]
